FAERS Safety Report 23723229 (Version 1)
Quarter: 2024Q2

REPORT INFORMATION
  Report Type: Spontaneous
  Country: US (occurrence: US)
  Receive Date: 20240409
  Receipt Date: 20240409
  Transmission Date: 20240716
  Serious: No
  Sender: FDA-Public Use
  Company Number: US-HISAMITSU-2023-US-018022

PATIENT
  Age: 86 Year
  Sex: Female
  Weight: 61.24 kg

DRUGS (14)
  1. LORAZEPAM [Concomitant]
     Active Substance: LORAZEPAM
     Dosage: 0.5MG EVERY 8 HOURS, AS NEEDED
  2. ASPIRIN [Concomitant]
     Active Substance: ASPIRIN
     Dosage: 81MG DAILY
  3. ACETAMINOPHEN [Concomitant]
     Active Substance: ACETAMINOPHEN
     Dosage: 1000MG TWICE DAILY
  4. COLACE [Concomitant]
     Active Substance: DOCUSATE SODIUM
     Dosage: UNSPECIFIED DOSE THREE TIMES DAILY
  5. METOPROLOL [Concomitant]
     Active Substance: METOPROLOL
     Dosage: 100MG TWICE DAILY
  6. MENTHOL\METHYL SALICYLATE [Suspect]
     Active Substance: MENTHOL\METHYL SALICYLATE
     Dosage: 1/3 PATCH TO EACH KNEE DAILY, AS NEEDED
     Route: 061
     Dates: start: 2023
  7. ATORVASTATIN [Concomitant]
     Active Substance: ATORVASTATIN
     Dosage: 20MG DAILY
  8. ENALAPRIL [Concomitant]
     Active Substance: ENALAPRIL
     Dosage: 20MG TWICE DAILY
  9. AMLODIPINE [Concomitant]
     Active Substance: AMLODIPINE BESYLATE
     Dosage: 5MG DAILY
  10. OMEPRAZOLE [Concomitant]
     Active Substance: OMEPRAZOLE
     Dosage: 20MG DAILY
  11. SERTRALINE [Concomitant]
     Active Substance: SERTRALINE HYDROCHLORIDE
     Dosage: 100MG DAILY
  12. BUSPIRONE [Concomitant]
     Active Substance: BUSPIRONE HYDROCHLORIDE
     Dosage: 10MG THREE TIMES DAILY
  13. METFORMIN [Concomitant]
     Active Substance: METFORMIN HYDROCHLORIDE
     Dosage: 1000MG TWICE DAILY
  14. SALONPAS PAIN RELIEF [Suspect]
     Active Substance: MENTHOL\METHYL SALICYLATE
     Indication: Analgesic therapy
     Dosage: 1 PATCH ON EACH KNEE DAILY, CONCURRENTLY
     Route: 061
     Dates: start: 2022

REACTIONS (1)
  - Intentional product misuse [Unknown]

NARRATIVE: CASE EVENT DATE: 20221201
